FAERS Safety Report 16820312 (Version 2)
Quarter: 2019Q3

REPORT INFORMATION
  Report Type: Spontaneous
  Country: US (occurrence: US)
  Receive Date: 20190918
  Receipt Date: 20190923
  Transmission Date: 20191005
  Serious: Yes (Death, Life-Threatening, Hospitalization, Other)
  Sender: FDA-Public Use
  Company Number: US-AUROBINDO-AUR-APL-2019-059039

PATIENT
  Age: 32 Year
  Sex: Male

DRUGS (2)
  1. FLECAINIDE ACETATE TABLETS USP 100MG [Suspect]
     Active Substance: FLECAINIDE ACETATE
     Indication: PRODUCT USED FOR UNKNOWN INDICATION
     Dosage: 30 DOSAGE FORM TOTAL (30 TABLETS)
     Route: 048
  2. METOPROLOL 100MG [Suspect]
     Active Substance: METOPROLOL
     Indication: PRODUCT USED FOR UNKNOWN INDICATION
     Dosage: UNK, (UNKNOWN AMOUNT)
     Route: 048

REACTIONS (9)
  - Ventricular fibrillation [Fatal]
  - Intentional overdose [Fatal]
  - Cardiac arrest [Fatal]
  - Hypotension [Fatal]
  - Toxicity to various agents [Unknown]
  - Electrocardiogram QRS complex prolonged [Fatal]
  - Unresponsive to stimuli [Fatal]
  - Cardiogenic shock [Fatal]
  - Shock [Fatal]
